FAERS Safety Report 5068271-9 (Version None)
Quarter: 2006Q3

REPORT INFORMATION
  Report Type: 
  Country: None (occurrence: None)
  Receive Date: 20060802
  Receipt Date: 20050706
  Transmission Date: 20061208
  Serious: Yes (Hospitalization)
  Sender: FDA-Public Use
  Company Number: US-BRISTOL-MYERS SQUIBB COMPANY-13027693

PATIENT
  Age: 53 Year
  Sex: Female
  Weight: 64 kg

DRUGS (6)
  1. COUMADIN [Suspect]
     Indication: CEREBROVASCULAR ACCIDENT
     Dosage: TAKING 2 YEARS; DOSE + STOP DATE NOT PROVIDED; NDC# FOR 1MG 0056-0176-70 + NDC# 2.5MG 0056-0176-70
     Route: 048
     Dates: start: 20030101
  2. EQUATE [Concomitant]
  3. PRAVACHOL [Concomitant]
     Dosage: TAKEN FOR YEARS
  4. PROZAC [Concomitant]
     Dosage: ONCE WEEKLY; TAKEN FOR YEARS
  5. XANAX [Concomitant]
     Dosage: TAKEN FOR YEARS
  6. AMITRIPTYLINE HCL [Concomitant]
     Dosage: TAKEN FOR YEARS

REACTIONS (1)
  - PULMONARY EMBOLISM [None]
